FAERS Safety Report 6443253-0 (Version None)
Quarter: 2009Q4

REPORT INFORMATION
  Report Type: 
  Country: None (occurrence: None)
  Receive Date: 20091117
  Receipt Date: 20091109
  Transmission Date: 20100525
  Serious: Yes (Disabling, Other)
  Sender: FDA-Public Use
  Company Number: GXKR2009GB12317

PATIENT
  Age: 59 Year
  Sex: Male
  Weight: 76 kg

DRUGS (12)
  1. CITALOPRAM HYDROBROMIDE [Suspect]
     Indication: ANTIDEPRESSANT THERAPY
     Dosage: 20 MG, UNK
     Route: 048
  2. ACETYLSALICYLIC ACID [Concomitant]
     Dosage: 75 MG, QD
     Route: 065
  3. ATENOLOL [Concomitant]
     Dosage: 50 MG, QD
     Route: 065
  4. BETNOVATE [Concomitant]
     Route: 065
  5. COAL TAR [Concomitant]
     Route: 065
  6. DOVONEX [Concomitant]
     Route: 065
  7. EXOREX [Concomitant]
     Route: 065
  8. FUROSEMIDE [Concomitant]
     Dosage: 20 MG, QD
     Route: 065
  9. LOSARTAN POTASSIUM [Concomitant]
     Dosage: 100 MG, QD
     Route: 065
  10. SIMVASTATIN [Concomitant]
     Dosage: 40 MG, QD
     Route: 065
  11. BETAMETHASONE DIPROPIONATE [Concomitant]
     Indication: SKIN DISORDER
     Route: 065
  12. CALCIPOTRIENE [Concomitant]
     Indication: SKIN DISORDER
     Route: 065

REACTIONS (1)
  - DEAFNESS [None]
